FAERS Safety Report 22248627 (Version 1)
Quarter: 2023Q2

REPORT INFORMATION
  Report Type: Spontaneous
  Country: FR (occurrence: FR)
  Receive Date: 20230425
  Receipt Date: 20230425
  Transmission Date: 20230721
  Serious: Yes (Other)
  Sender: FDA-Public Use
  Company Number: FR-STRIDES ARCOLAB LIMITED-2023SP005956

PATIENT
  Age: 61 Year
  Sex: Female

DRUGS (2)
  1. PREDNISOLONE [Suspect]
     Active Substance: PREDNISOLONE
     Indication: Antineutrophil cytoplasmic antibody negative
     Dosage: 1 MILLIGRAM/KILOGRAM, PER DAY
     Route: 065
  2. PREDNISOLONE [Suspect]
     Active Substance: PREDNISOLONE
     Indication: Vasculitis necrotising

REACTIONS (6)
  - Colitis [Unknown]
  - Eschar [Unknown]
  - Campylobacter infection [Unknown]
  - Klebsiella infection [Unknown]
  - Behaviour disorder [Unknown]
  - Insomnia [Unknown]
